FAERS Safety Report 9033443 (Version 1)
Quarter: 2013Q1

REPORT INFORMATION
  Report Type: Spontaneous
  Country: CA (occurrence: CA)
  Receive Date: 20130128
  Receipt Date: 20130128
  Transmission Date: 20140127
  Serious: Yes (Other)
  Sender: FDA-Public Use
  Company Number: CA-AMGEN-CANSP2012059792

PATIENT
  Age: 68 Year
  Sex: Female

DRUGS (2)
  1. ENBREL [Suspect]
     Indication: RHEUMATOID ARTHRITIS
     Dosage: UNK
     Dates: start: 20110916, end: 201111
  2. METHOTREXATE [Concomitant]
     Dosage: UNK

REACTIONS (2)
  - Oropharyngeal swelling [Recovered/Resolved]
  - Hypersensitivity [Recovered/Resolved]
